FAERS Safety Report 22374130 (Version 1)
Quarter: 2023Q2

REPORT INFORMATION
  Report Type: Spontaneous
  Country: AU (occurrence: AU)
  Receive Date: 20230526
  Receipt Date: 20230526
  Transmission Date: 20230721
  Serious: Yes (Hospitalization)
  Sender: FDA-Public Use
  Company Number: AU-GE HEALTHCARE-2023CSU004114

PATIENT
  Age: 37 Year
  Sex: Male
  Weight: 72 kg

DRUGS (3)
  1. OMNIPAQUE [Suspect]
     Active Substance: IOHEXOL
     Indication: Computerised tomogram neck
     Dosage: 140 ML, SINGLE
     Route: 042
     Dates: start: 20230524, end: 20230524
  2. OMNIPAQUE [Suspect]
     Active Substance: IOHEXOL
     Indication: Nasal septum deviation
  3. OMNIPAQUE [Suspect]
     Active Substance: IOHEXOL
     Indication: Obstructive sleep apnoea syndrome

REACTIONS (2)
  - Sneezing [Recovering/Resolving]
  - Vomiting [Recovering/Resolving]

NARRATIVE: CASE EVENT DATE: 20230524
